FAERS Safety Report 6878610-1 (Version None)
Quarter: 2010Q3

REPORT INFORMATION
  Report Type: 
  Country: None (occurrence: None)
  Receive Date: 20100728
  Receipt Date: 20100714
  Transmission Date: 20110219
  Serious: Yes (Hospitalization)
  Sender: FDA-Public Use
  Company Number: A0866629A

PATIENT
  Age: 59 Year
  Sex: Female
  Weight: 162.3 kg

DRUGS (8)
  1. AVANDIA [Suspect]
     Dosage: 4MG TWICE PER DAY
     Route: 048
     Dates: start: 19990101, end: 20070214
  2. ENALAPRIL MALEATE [Suspect]
  3. DUONEB [Concomitant]
  4. COMBIVENT [Concomitant]
  5. TRAZODONE [Concomitant]
  6. ALBUTEROL [Concomitant]
  7. INSULIN [Concomitant]
  8. GLUCOVANCE [Concomitant]

REACTIONS (6)
  - CARDIAC DISORDER [None]
  - CARDIAC FAILURE CONGESTIVE [None]
  - DEPRESSION [None]
  - DYSPNOEA [None]
  - HEART RATE IRREGULAR [None]
  - OEDEMA PERIPHERAL [None]
